FAERS Safety Report 8196220-3 (Version None)
Quarter: 2012Q1

REPORT INFORMATION
  Report Type: 
  Country: None (occurrence: None)
  Receive Date: 20120307
  Receipt Date: 20120307
  Transmission Date: 20120608
  Serious: No
  Sender: FDA-Public Use
  Company Number: None

PATIENT
  Sex: Female
  Weight: 106.3 kg

DRUGS (5)
  1. CYCLOPHOSPHAMIDE [Suspect]
     Dosage: 5088 MG
  2. NEULASTA [Suspect]
     Dosage: 60 MG
  3. DOXORUBICIN HCL [Suspect]
     Dosage: 508 MG
  4. TAXOL [Suspect]
     Dosage: 2220 MG
  5. HERCEPTIN [Suspect]
     Dosage: 2160 MG

REACTIONS (2)
  - EJECTION FRACTION DECREASED [None]
  - DYSPNOEA [None]
